FAERS Safety Report 10074942 (Version 1)
Quarter: 2014Q2

REPORT INFORMATION
  Report Type: Not Available
  Country: FR (occurrence: FR)
  Receive Date: 20140414
  Receipt Date: 20140414
  Transmission Date: 20141212
  Serious: Yes (Hospitalization)
  Sender: FDA-Public Use
  Company Number: FR-BEH-2014041654

PATIENT
  Age: 53 Year
  Sex: Male

DRUGS (6)
  1. PRIVIGEN [Suspect]
     Indication: RADICULOPATHY
     Dosage: DOSE: 120 G VERSUS 180 G [SIC!], ORIGALLY PLANNED FOR 5 DAYS
     Route: 042
     Dates: start: 20140314, end: 20140317
  2. PRIVIGEN [Suspect]
     Dosage: DOSE: 3 X 30 G
  3. PRIVIGEN [Suspect]
     Dosage: DOSE: 3 X 30 G
  4. NEURONTIN [Concomitant]
  5. VIAGRA [Concomitant]
  6. DOXAZOSINE [Concomitant]

REACTIONS (4)
  - Meningitis aseptic [Recovered/Resolved]
  - Pyrexia [Recovering/Resolving]
  - Headache [Recovering/Resolving]
  - Post lumbar puncture syndrome [Recovering/Resolving]
